FAERS Safety Report 4995111-6 (Version None)
Quarter: 2006Q2

REPORT INFORMATION
  Report Type: 
  Country: None (occurrence: None)
  Receive Date: 20060508
  Receipt Date: 20050607
  Transmission Date: 20061013
  Serious: Yes (Hospitalization)
  Sender: FDA-Public Use
  Company Number: US-MERCK-0506USA01100

PATIENT
  Age: 59 Year
  Sex: Male
  Weight: 93 kg

DRUGS (2)
  1. VIOXX [Suspect]
     Indication: TRAUMATIC ARTHRITIS
     Route: 048
     Dates: start: 20011201, end: 20040201
  2. BUFFERIN [Concomitant]
     Route: 065

REACTIONS (2)
  - CARDIOVASCULAR DISORDER [None]
  - CORONARY ARTERY DISEASE [None]
